FAERS Safety Report 11112794 (Version 5)
Quarter: 2015Q4

REPORT INFORMATION
  Report Type: Spontaneous
  Country: US (occurrence: US)
  Receive Date: 20150514
  Receipt Date: 20151117
  Transmission Date: 20160304
  Serious: Yes (Hospitalization, Disabling, Other)
  Sender: FDA-Public Use
  Company Number: US-MERCK-1505USA004568

PATIENT
  Sex: Female
  Weight: 63.39 kg

DRUGS (5)
  1. FOSAMAX [Suspect]
     Active Substance: ALENDRONATE SODIUM
     Indication: OSTEOPOROSIS
     Dosage: 70 MG, UNK
     Route: 048
     Dates: start: 2007, end: 2008
  2. [THERAPY UNSPECIFIED] [Concomitant]
     Active Substance: UNSPECIFIED INGREDIENT
     Indication: HYPERTENSION
     Dosage: UNK
     Route: 065
     Dates: start: 2004
  3. ALENDRONATE SODIUM. [Suspect]
     Active Substance: ALENDRONATE SODIUM
     Indication: OSTEOPOROSIS
     Dosage: 70 MG, QW
     Route: 048
     Dates: start: 200802, end: 2008
  4. FOSAMAX [Suspect]
     Active Substance: ALENDRONATE SODIUM
     Indication: OSTEOPENIA
  5. ALENDRONATE SODIUM. [Suspect]
     Active Substance: ALENDRONATE SODIUM
     Dosage: 70 MG, QW
     Route: 048
     Dates: start: 200810, end: 201404

REACTIONS (19)
  - Fall [Unknown]
  - Thrombocytopenia [Unknown]
  - Procedural hypotension [Unknown]
  - Femur fracture [Not Recovered/Not Resolved]
  - Depression [Unknown]
  - Tremor [Unknown]
  - Osteoarthritis [Unknown]
  - Anaemia postoperative [Recovered/Resolved]
  - Femur fracture [Not Recovered/Not Resolved]
  - Gastrooesophageal reflux disease [Unknown]
  - Anaemia postoperative [Unknown]
  - Low turnover osteopathy [Not Recovered/Not Resolved]
  - Anaemia postoperative [Recovering/Resolving]
  - Acute kidney injury [Recovered/Resolved]
  - Chronic kidney disease [Unknown]
  - Anxiety [Unknown]
  - Fracture delayed union [Unknown]
  - Fracture nonunion [Unknown]
  - Heart rate irregular [Unknown]

NARRATIVE: CASE EVENT DATE: 201309
